FAERS Safety Report 10571696 (Version 1)
Quarter: 2014Q4

REPORT INFORMATION
  Report Type: Report from Study
  Country: US (occurrence: US)
  Receive Date: 20141107
  Receipt Date: 20141107
  Transmission Date: 20150529
  Serious: Yes (Other)
  Sender: FDA-Public Use
  Company Number: US-ABBVIE-14K-163-1302955-00

PATIENT
  Age: 61 Year
  Sex: Female

DRUGS (1)
  1. HUMIRA [Suspect]
     Active Substance: ADALIMUMAB
     Indication: CROHN^S DISEASE
     Route: 065
     Dates: start: 20140328

REACTIONS (16)
  - Nail injury [Unknown]
  - Viral infection [Unknown]
  - Fatigue [Unknown]
  - Bowel movement irregularity [Not Recovered/Not Resolved]
  - Onychomycosis [Not Recovered/Not Resolved]
  - Malaise [Unknown]
  - Dysphonia [Unknown]
  - Gastric infection [Unknown]
  - Activities of daily living impaired [Unknown]
  - Inappropriate schedule of drug administration [Unknown]
  - Therapeutic response unexpected [Unknown]
  - Pain [Not Recovered/Not Resolved]
  - Nail injury [Not Recovered/Not Resolved]
  - Ingrowing nail [Not Recovered/Not Resolved]
  - Infection [Unknown]
  - Hair growth abnormal [Unknown]

NARRATIVE: CASE EVENT DATE: 2014
